FAERS Safety Report 10229377 (Version 1)
Quarter: 2014Q2

REPORT INFORMATION
  Report Type: Report from Study
  Country: CA (occurrence: CA)
  Receive Date: 20140611
  Receipt Date: 20140611
  Transmission Date: 20141212
  Serious: Yes (Death)
  Sender: FDA-Public Use
  Company Number: CA-BRISTOL-MYERS SQUIBB COMPANY-20953832

PATIENT
  Age: 54 Year
  Sex: Female

DRUGS (9)
  1. ABATACEPT SUBQ INJECTION 125MG/ML [Suspect]
     Indication: RHEUMATOID ARTHRITIS
     Route: 058
     Dates: start: 20130821
  2. LOSEC [Concomitant]
  3. INDOMETHACIN [Concomitant]
  4. METHOTREXATE [Concomitant]
  5. PREDNISONE [Concomitant]
  6. CALCIUM [Concomitant]
  7. VITAMIN D [Concomitant]
  8. MILK THISTLE [Concomitant]
  9. SULFASALAZINE [Concomitant]

REACTIONS (1)
  - Death [Fatal]
